FAERS Safety Report 4382908-9 (Version None)
Quarter: 2004Q2

REPORT INFORMATION
  Report Type: 
  Country: None (occurrence: None)
  Receive Date: 20040603
  Receipt Date: 20040126
  Transmission Date: 20050107
  Serious: Yes (Death)
  Sender: FDA-Public Use
  Company Number: 200410662US

PATIENT
  Age: 89 Year
  Sex: Male

DRUGS (2)
  1. LOVENOX [Suspect]
     Dosage: 70 MG BID
     Dates: start: 20040110, end: 20040126
  2. ASPIRIN [Concomitant]

REACTIONS (1)
  - GASTROINTESTINAL HAEMORRHAGE [None]
